FAERS Safety Report 7340180-1 (Version None)
Quarter: 2011Q1

REPORT INFORMATION
  Report Type: 
  Country: None (occurrence: None)
  Receive Date: 20110228
  Receipt Date: 20110210
  Transmission Date: 20110831
  Serious: Yes (Hospitalization)
  Sender: FDA-Public Use
  Company Number: 2011PV000011

PATIENT
  Age: 41 Year
  Sex: Male
  Weight: 66 kg

DRUGS (11)
  1. NEXIUM [Concomitant]
  2. METHOTREXATE [Suspect]
     Indication: LYMPHOMA
     Dosage: 5750 MG; IV
     Route: 042
     Dates: start: 20101104, end: 20101104
  3. DEPOCYT [Suspect]
     Indication: LYMPHOMA
     Dosage: 50 MG; INTH
     Route: 037
     Dates: start: 20101105, end: 20101105
  4. RITUXIMAB (RITUXIMAB) [Suspect]
     Indication: LYMPHOMA
     Dosage: 720 MG; IV
     Route: 042
     Dates: start: 20101103, end: 20101103
  5. METHYLPREDNISOLONE [Suspect]
     Indication: LYMPHOMA
     Dosage: 115 MG; IV
     Route: 042
     Dates: start: 20101104, end: 20101109
  6. GRANOCYTE /03200101/ [Concomitant]
  7. DOXORUBICINE (DOXORUBICIN HYDROCHLORIDE) [Suspect]
     Dosage: 115 MG; IV
     Route: 042
     Dates: start: 20101105, end: 20101105
  8. VINCRISTINE [Suspect]
     Indication: LYMPHOMA
     Dosage: 2 MG; IV
     Route: 042
     Dates: start: 20101104, end: 20101104
  9. CYCLOPHOSPHAMIDE [Suspect]
     Indication: LYMPHOMA
     Dosage: 950 MG; IV
     Route: 042
     Dates: start: 20101105, end: 20101107
  10. TOPALGIC /00599202 [Concomitant]
  11. EPREX [Concomitant]

REACTIONS (12)
  - RECTAL HAEMORRHAGE [None]
  - MELAENA [None]
  - PYREXIA [None]
  - ESCHERICHIA TEST POSITIVE [None]
  - OESOPHAGEAL ULCER [None]
  - OESOPHAGEAL CANDIDIASIS [None]
  - ANGIODYSPLASIA [None]
  - STOMATITIS [None]
  - ESCHERICHIA SEPSIS [None]
  - EPISTAXIS [None]
  - BONE MARROW FAILURE [None]
  - PHARYNGEAL INFLAMMATION [None]
